FAERS Safety Report 5585237-0 (Version None)
Quarter: 2008Q1

REPORT INFORMATION
  Report Type: 
  Country: None (occurrence: None)
  Receive Date: 20080108
  Receipt Date: 20080108
  Transmission Date: 20080703
  Serious: No
  Sender: FDA-Public Use
  Company Number: None

PATIENT
  Age: 60 Year
  Sex: Male

DRUGS (2)
  1. AUGMENTIN '200' [Suspect]
     Dosage: 875/125 MG BID
     Dates: start: 20060603, end: 20060609
  2. AUGMENTIN '200' [Suspect]
     Dosage: 875/125 MG BID
     Dates: start: 20060611, end: 20060613

REACTIONS (4)
  - BIOPSY LIVER ABNORMAL [None]
  - CHOLESTASIS [None]
  - INFLAMMATION [None]
  - LIVER INJURY [None]
